FAERS Safety Report 11287880 (Version 1)
Quarter: 2015Q3

REPORT INFORMATION
  Report Type: Spontaneous
  Country: US (occurrence: US)
  Receive Date: 20150721
  Receipt Date: 20150721
  Transmission Date: 20151125
  Serious: No
  Sender: FDA-Public Use
  Company Number: US-ENDO PHARMACEUTICALS INC.-NYST20140008

PATIENT
  Age: 29 Day
  Sex: Female
  Weight: 3.59 kg

DRUGS (2)
  1. NYSTATIN SUSPENSION [Suspect]
     Active Substance: NYSTATIN
     Route: 048
     Dates: start: 20141015
  2. NYSTATIN SUSPENSION [Suspect]
     Active Substance: NYSTATIN
     Indication: CANDIDA INFECTION
     Route: 048
     Dates: start: 20141009, end: 20141010

REACTIONS (7)
  - Somnolence [Recovered/Resolved]
  - Irritability [Recovered/Resolved]
  - Diarrhoea [Recovered/Resolved]
  - Drug prescribing error [Recovered/Resolved]
  - Decreased appetite [Recovered/Resolved]
  - Prescribed overdose [Recovered/Resolved]
  - Oliguria [Recovered/Resolved]

NARRATIVE: CASE EVENT DATE: 20141009
